FAERS Safety Report 4605999-6 (Version None)
Quarter: 2005Q1

REPORT INFORMATION
  Report Type: 
  Country: None (occurrence: None)
  Receive Date: 20050116
  Receipt Date: 20040725
  Transmission Date: 20050727
  Serious: Yes (Hospitalization)
  Sender: FDA-Public Use
  Company Number: K200401127

PATIENT
  Age: 88 Year
  Sex: Female
  Weight: 66.2 kg

DRUGS (6)
  1. PROCANBID [Suspect]
     Indication: ARRHYTHMIA
     Dosage: 1000 MG, BID, ORAL
     Route: 048
     Dates: start: 20040723, end: 20040725
  2. PEPCID [Concomitant]
  3. SPIRONOLACTONE [Concomitant]
  4. LASIX [Concomitant]
  5. ALTACE [Concomitant]
  6. DIGOXIN [Concomitant]

REACTIONS (2)
  - BLOOD PRESSURE DECREASED [None]
  - STOOL ANALYSIS ABNORMAL [None]
